FAERS Safety Report 5086357-X (Version None)
Quarter: 2006Q3

REPORT INFORMATION
  Report Type: 
  Country: None (occurrence: None)
  Receive Date: 20060823
  Receipt Date: 20060811
  Transmission Date: 20061208
  Serious: Yes (Other)
  Sender: FDA-Public Use
  Company Number: US-BRISTOL-MYERS SQUIBB COMPANY-13472402

PATIENT
  Age: 63 Year
  Sex: Male
  Weight: 86 kg

DRUGS (7)
  1. COUMADIN [Suspect]
     Indication: CARDIAC FAILURE
     Dates: start: 19760101
  2. LANOXIN [Concomitant]
  3. COREG [Concomitant]
  4. METFORMIN [Concomitant]
  5. FUROSEMIDE [Concomitant]
  6. PLAVIX [Concomitant]
  7. ASPIRIN [Concomitant]

REACTIONS (1)
  - BLINDNESS [None]
